FAERS Safety Report 4308784-8 (Version None)
Quarter: 2004Q1

REPORT INFORMATION
  Report Type: 
  Country: None (occurrence: None)
  Receive Date: 20040227
  Receipt Date: 20040227
  Transmission Date: 20041129
  Serious: Yes (Hospitalization)
  Sender: FDA-Public Use
  Company Number: None

PATIENT
  Age: 37 Year
  Sex: Female

DRUGS (8)
  1. DEPAKOTE [Suspect]
     Indication: BIPOLAR DISORDER
     Dosage: 500 MG PO BID
     Route: 048
  2. DEPAKOTE [Suspect]
     Indication: BIPOLAR DISORDER
     Dosage: 1000 MG PO QHS
     Route: 048
  3. PROZAC [Concomitant]
  4. RISPERDAL [Concomitant]
  5. SEROQUEL [Concomitant]
  6. GEODON [Concomitant]
  7. SINEQUAN [Concomitant]
  8. CLOZARIL [Concomitant]

REACTIONS (2)
  - DIZZINESS [None]
  - FALL [None]
